FAERS Safety Report 4397437-6 (Version None)
Quarter: 2004Q3

REPORT INFORMATION
  Report Type: 
  Country: None (occurrence: None)
  Receive Date: 20040714
  Receipt Date: 20040705
  Transmission Date: 20050211
  Serious: Yes (Other)
  Sender: FDA-Public Use
  Company Number: PHBS2004CA09027

PATIENT
  Age: 58 Year
  Sex: Female

DRUGS (2)
  1. ESTRADIOL [Suspect]
     Indication: OSTEOPOROSIS
     Dosage: 50 UG/DAY
     Route: 062
  2. PROVERA [Concomitant]

REACTIONS (5)
  - BONE DISORDER [None]
  - FIBROMYALGIA [None]
  - HYPOTONIA [None]
  - PAIN IN EXTREMITY [None]
  - WEIGHT DECREASED [None]
